FAERS Safety Report 6715058-4 (Version None)
Quarter: 2010Q2

REPORT INFORMATION
  Report Type: 
  Country: None (occurrence: None)
  Receive Date: 20100507
  Receipt Date: 20100429
  Transmission Date: 20101027
  Serious: No
  Sender: FDA-Public Use
  Company Number: US-ROXANE LABORATORIES, INC.-2010-RO-00524RO

PATIENT
  Age: 84 Year
  Sex: Female

DRUGS (6)
  1. PREDNISONE TAB [Suspect]
     Indication: MYALGIA
     Dosage: 10 MG
     Route: 048
     Dates: start: 20091201
  2. PREDNISONE TAB [Suspect]
     Dosage: 3 MG
     Route: 048
  3. THYROID TAB [Concomitant]
  4. VITAMIN C [Concomitant]
  5. NAPROXEN [Concomitant]
     Indication: ARTHRITIS
  6. SLEEPING PILL [Concomitant]

REACTIONS (9)
  - ABDOMINAL PAIN UPPER [None]
  - ALOPECIA [None]
  - ANXIETY [None]
  - DEPRESSION [None]
  - DYSARTHRIA [None]
  - DYSPNOEA [None]
  - HOT FLUSH [None]
  - NAUSEA [None]
  - POLLAKIURIA [None]
